FAERS Safety Report 7381859-5 (Version None)
Quarter: 2011Q1

REPORT INFORMATION
  Report Type: 
  Country: None (occurrence: None)
  Receive Date: 20110329
  Receipt Date: 20110323
  Transmission Date: 20110831
  Serious: Yes (Other)
  Sender: FDA-Public Use
  Company Number: US-PFIZER INC-2011065034

PATIENT
  Sex: Female
  Weight: 66 kg

DRUGS (4)
  1. TOPROL-XL [Concomitant]
     Indication: HYPERTENSION
     Dosage: UNK
  2. PROTONIX [Concomitant]
     Indication: ABDOMINAL DISCOMFORT
     Dosage: UNK
  3. AVAPRO [Concomitant]
     Dosage: UNK
  4. XALATAN [Suspect]
     Indication: ANGLE CLOSURE GLAUCOMA
     Dosage: 1 DROP EACH EYE, EVERY NIGHT
     Route: 047

REACTIONS (3)
  - SKIN DISCOLOURATION [None]
  - ANGLE CLOSURE GLAUCOMA [None]
  - GLAUCOMA [None]
